FAERS Safety Report 9284921 (Version 1)
Quarter: 2013Q2

REPORT INFORMATION
  Report Type: Spontaneous
  Country: US (occurrence: US)
  Receive Date: 20130513
  Receipt Date: 20130513
  Transmission Date: 20140414
  Serious: No
  Sender: FDA-Public Use
  Company Number: US-BIOGENIDEC-2013BI042566

PATIENT
  Age: 53 Year
  Sex: Female

DRUGS (2)
  1. TYSABRI [Suspect]
     Indication: MULTIPLE SCLEROSIS
     Route: 042
     Dates: start: 20090224
  2. AMPYRA [Concomitant]
     Indication: MULTIPLE SCLEROSIS
     Dates: start: 20110801, end: 201211

REACTIONS (5)
  - Cough [Recovered/Resolved]
  - Sinus congestion [Recovered/Resolved]
  - Headache [Recovered/Resolved]
  - Upper respiratory tract infection [Recovered/Resolved]
  - Multiple sclerosis relapse [Recovered/Resolved]
